FAERS Safety Report 13421757 (Version 1)
Quarter: 2017Q2

REPORT INFORMATION
  Report Type: Spontaneous
  Country: FR (occurrence: FR)
  Receive Date: 20170410
  Receipt Date: 20170410
  Transmission Date: 20170830
  Serious: Yes (Hospitalization, Other)
  Sender: FDA-Public Use
  Company Number: FR-ACCORD-049998

PATIENT
  Age: 70 Year
  Sex: Male

DRUGS (13)
  1. FLUOROURACIL. [Suspect]
     Active Substance: FLUOROURACIL
     Indication: OESOPHAGEAL ADENOCARCINOMA
     Dosage: 25-JAN-2017 TO 26-JAN-2017 INTRAVENOUS FLUOROURACIL ACCORD 50 MG/ML AT DOSE OF 3115 MG...
     Dates: start: 20161104, end: 20161226
  2. FOLINIC ACID [Suspect]
     Active Substance: LEUCOVORIN
     Indication: OESOPHAGEAL ADENOCARCINOMA
     Dates: start: 20161104, end: 20161226
  3. POTASSIUM RICHARD [Concomitant]
     Active Substance: POTASSIUM CHLORIDE\POTASSIUM GLYCEROPHOSPHATE ANHYDROUS
  4. IMOVANE [Concomitant]
     Active Substance: ZOPICLONE
  5. KARDEGIC [Concomitant]
     Active Substance: ASPIRIN LYSINE
     Dosage: STRENGTH: 75 MG?POWDER FOR ORAL SOLUTION IN SACHET ONCE AT NOON
     Route: 048
  6. OXALIPLATIN ACCORD [Suspect]
     Active Substance: OXALIPLATIN
     Indication: OESOPHAGEAL ADENOCARCINOMA
     Dosage: STRENGTH: 5 MG/ML?ONE SINGLE INTAKE
     Route: 042
     Dates: start: 20170125
  7. PANTOPRAZOLE [Concomitant]
     Active Substance: PANTOPRAZOLE
     Dosage: ONCE IN THE EVENING VIA ORAL ROUTE
     Route: 048
  8. NATISPRAY [Concomitant]
     Active Substance: NITROGLYCERIN
  9. CODOLIPRANE [Concomitant]
     Active Substance: ACETAMINOPHEN\CODEINE PHOSPHATE
  10. DOCETAXEL. [Suspect]
     Active Substance: DOCETAXEL
     Indication: OESOPHAGEAL ADENOCARCINOMA
     Dosage: ONE SINGLE INTAKE
     Route: 042
     Dates: start: 20170125, end: 20170126
  11. SECTRAL [Concomitant]
     Active Substance: ACEBUTOLOL HYDROCHLORIDE
     Dosage: STRENGTH: 400 MG
     Route: 048
  12. IRINOTECAN [Suspect]
     Active Substance: IRINOTECAN
     Indication: OESOPHAGEAL ADENOCARCINOMA
     Dates: start: 20161104, end: 20161226
  13. INEGY [Concomitant]
     Active Substance: EZETIMIBE\SIMVASTATIN
     Dosage: STRENGTH:10 MG/40 MG?IN THE MORNING
     Route: 048

REACTIONS (6)
  - Asthenia [Unknown]
  - Treatment failure [Unknown]
  - Paraesthesia [Unknown]
  - Off label use [Unknown]
  - Oesophageal fistula [Not Recovered/Not Resolved]
  - Visual impairment [Unknown]

NARRATIVE: CASE EVENT DATE: 20170201
